FAERS Safety Report 11687697 (Version 4)
Quarter: 2017Q1

REPORT INFORMATION
  Report Type: Spontaneous
  Country: US (occurrence: US)
  Receive Date: 20151030
  Receipt Date: 20170125
  Transmission Date: 20170428
  Serious: Yes (Death, Hospitalization)
  Sender: FDA-Public Use
  Company Number: US-JNJFOC-20151018006

PATIENT
  Age: 66 Year
  Sex: Female

DRUGS (5)
  1. XARELTO [Suspect]
     Active Substance: RIVAROXABAN
     Indication: THROMBOSIS PROPHYLAXIS
     Route: 048
     Dates: start: 20141007, end: 20141107
  2. XARELTO [Suspect]
     Active Substance: RIVAROXABAN
     Indication: KNEE ARTHROPLASTY
     Route: 048
     Dates: start: 2014, end: 20141204
  3. XARELTO [Suspect]
     Active Substance: RIVAROXABAN
     Indication: KNEE ARTHROPLASTY
     Route: 048
     Dates: start: 20141007, end: 20141107
  4. LOVENOX [Suspect]
     Active Substance: ENOXAPARIN SODIUM
     Indication: ANTICOAGULANT THERAPY
     Route: 065
  5. XARELTO [Suspect]
     Active Substance: RIVAROXABAN
     Indication: THROMBOSIS PROPHYLAXIS
     Route: 048
     Dates: start: 2014, end: 20141204

REACTIONS (3)
  - Retroperitoneal haemorrhage [Fatal]
  - Coagulopathy [Fatal]
  - Renal failure [Fatal]

NARRATIVE: CASE EVENT DATE: 201412
